FAERS Safety Report 6977382-X (Version None)
Quarter: 2010Q3

REPORT INFORMATION
  Report Type: 
  Country: None (occurrence: None)
  Receive Date: 20100910
  Receipt Date: 20100830
  Transmission Date: 20110219
  Serious: Yes (Hospitalization, Other)
  Sender: FDA-Public Use
  Company Number: JP-JNJFOC-20100507005

PATIENT
  Sex: Female
  Weight: 65 kg

DRUGS (13)
  1. GOLIMUMAB [Suspect]
     Indication: RHEUMATOID ARTHRITIS
     Route: 058
  2. GOLIMUMAB [Suspect]
     Route: 058
  3. RHEUMATREX [Concomitant]
     Indication: RHEUMATOID ARTHRITIS
     Route: 048
  4. FOLIAMIN [Concomitant]
     Indication: PROPHYLAXIS
     Route: 048
  5. LOXONIN [Concomitant]
     Indication: RHEUMATOID ARTHRITIS
     Route: 048
  6. MUCOSTA [Concomitant]
     Indication: PROPHYLAXIS
     Route: 048
  7. TAKEPRON [Concomitant]
     Route: 048
  8. ALOSENN [Concomitant]
     Indication: CONSTIPATION
     Route: 048
  9. KETOPROFEN [Concomitant]
     Indication: RHEUMATOID ARTHRITIS
     Route: 062
  10. DERMOVATE [Concomitant]
     Route: 061
  11. SODIUM HYALURONATE [Concomitant]
     Indication: RHINITIS ALLERGIC
     Route: 031
  12. BORIC ACID [Concomitant]
     Indication: KERATOCONJUNCTIVITIS SICCA
     Route: 031
  13. PETROLATUM SALICYLATE [Concomitant]
     Route: 061

REACTIONS (1)
  - BREAST CANCER [None]
